FAERS Safety Report 14566687 (Version 4)
Quarter: 2018Q1

REPORT INFORMATION
  Report Type: Report from Study
  Country: ES (occurrence: ES)
  Receive Date: 20180223
  Receipt Date: 20180306
  Transmission Date: 20180509
  Serious: Yes (Death, Life-Threatening, Other)
  Sender: FDA-Public Use
  Company Number: ES-BRISTOL-MYERS SQUIBB COMPANY-BMS-2016-045385

PATIENT
  Age: 58 Year
  Sex: Male
  Weight: 65.5 kg

DRUGS (2)
  1. NIVOLUMAB [Suspect]
     Active Substance: NIVOLUMAB
     Indication: NON-SMALL CELL LUNG CANCER
     Dosage: 198 MG, UNK
     Route: 065
     Dates: start: 20160317, end: 20160317
  2. NIVOLUMAB [Suspect]
     Active Substance: NIVOLUMAB
     Indication: PRODUCT USED FOR UNKNOWN INDICATION
     Dosage: 198 MG, UNK
     Route: 065
     Dates: start: 20160331, end: 20160331

REACTIONS (2)
  - Malignant neoplasm progression [Fatal]
  - Oedema peripheral [Not Recovered/Not Resolved]

NARRATIVE: CASE EVENT DATE: 20160414
